FAERS Safety Report 7082274-4 (Version None)
Quarter: 2010Q4

REPORT INFORMATION
  Report Type: 
  Country: None (occurrence: None)
  Receive Date: 20101104
  Receipt Date: 20101026
  Transmission Date: 20110411
  Serious: Yes (Hospitalization)
  Sender: FDA-Public Use
  Company Number: US-BIOGENIDEC-2010BI037623

PATIENT
  Age: 39 Year
  Sex: Male

DRUGS (2)
  1. TYSABRI [Suspect]
     Indication: MULTIPLE SCLEROSIS
     Route: 042
     Dates: start: 20080811, end: 20091116
  2. TYSABRI [Suspect]
     Route: 042
     Dates: start: 20100730

REACTIONS (1)
  - DRUG DELIVERY DEVICE IMPLANTATION [None]
